FAERS Safety Report 7917348-6 (Version None)
Quarter: 2011Q4

REPORT INFORMATION
  Report Type: 
  Country: None (occurrence: None)
  Receive Date: 20111116
  Receipt Date: 20111108
  Transmission Date: 20120403
  Serious: Yes (Other)
  Sender: FDA-Public Use
  Company Number: PHHY2011BR04738

PATIENT
  Sex: Female

DRUGS (11)
  1. EXELON [Suspect]
     Indication: DEMENTIA ALZHEIMER'S TYPE
     Dosage: 9MG/5CM2
     Route: 062
     Dates: start: 20100801
  2. EXIBE [Suspect]
     Dosage: 10 MG, UNK
  3. ENALAPRIL MALEATE [Suspect]
     Dosage: 20 MG, UNK
  4. PURAN [Suspect]
     Dosage: 150 MG, UNK
  5. GLYBURIDE [Suspect]
     Dosage: 25 MG, UNK
  6. NOQUITOL [Suspect]
  7. METFORMIN HCL [Suspect]
     Dosage: 850 MG, UNK
  8. EXELON [Suspect]
     Dosage: 18MG/10CM2
     Dates: start: 20100901
  9. PAROXETINE HCL [Suspect]
     Dosage: 10 MG, UNK
  10. EXELON [Suspect]
     Dosage: 27MG/5CM2 PER 24 HOURS
     Dates: start: 20100901
  11. HYDROCHLOROTHIAZIDE [Suspect]
     Dosage: 25 MG, UNK

REACTIONS (3)
  - BREAST CANCER [None]
  - BREAST MASS [None]
  - WRONG TECHNIQUE IN DRUG USAGE PROCESS [None]
